FAERS Safety Report 8381187-5 (Version None)
Quarter: 2012Q2

REPORT INFORMATION
  Report Type: 
  Country: None (occurrence: None)
  Receive Date: 20120523
  Receipt Date: 20120511
  Transmission Date: 20120825
  Serious: Yes (Hospitalization)
  Sender: FDA-Public Use
  Company Number: FR-BRISTOL-MYERS SQUIBB COMPANY-16594772

PATIENT
  Age: 86 Year
  Sex: Female

DRUGS (8)
  1. AUGMENTIN [Suspect]
     Indication: BRONCHITIS
     Route: 048
     Dates: start: 20120417, end: 20120423
  2. ARICEPT [Concomitant]
  3. COUMADIN [Suspect]
     Route: 048
  4. CITALOPRAM [Concomitant]
  5. MEMANTINE HYDROCHLORIDE [Concomitant]
  6. MOXIFLOXACIN HCL [Suspect]
     Indication: BRONCHITIS
     Route: 048
     Dates: start: 20120424, end: 20120425
  7. FUROSEMIDE [Concomitant]
  8. LISINOPRIL [Concomitant]

REACTIONS (4)
  - BRONCHITIS [None]
  - MALAISE [None]
  - INTERNATIONAL NORMALISED RATIO INCREASED [None]
  - LOSS OF CONSCIOUSNESS [None]
